FAERS Safety Report 17604228 (Version 1)
Quarter: 2020Q1

REPORT INFORMATION
  Report Type: Spontaneous
  Country: US (occurrence: US)
  Receive Date: 20200331
  Receipt Date: 20200331
  Transmission Date: 20200409
  Serious: Yes (Other)
  Sender: FDA-Public Use
  Company Number: US-PFIZER INC-2020129622

PATIENT
  Age: 66 Year
  Sex: Male

DRUGS (1)
  1. XELJANZ XR [Suspect]
     Active Substance: TOFACITINIB CITRATE
     Dosage: UNK

REACTIONS (10)
  - Fungal skin infection [Unknown]
  - Drug ineffective [Unknown]
  - Fatigue [Unknown]
  - Joint space narrowing [Unknown]
  - Skin ulcer [Unknown]
  - Apathy [Unknown]
  - Skin lesion [Unknown]
  - Arthralgia [Unknown]
  - Joint swelling [Unknown]
  - Lung disorder [Unknown]
